FAERS Safety Report 5011465-9 (Version None)
Quarter: 2006Q2

REPORT INFORMATION
  Report Type: 
  Country: None (occurrence: None)
  Receive Date: 20060525
  Receipt Date: 20060515
  Transmission Date: 20061013
  Serious: Yes (Other)
  Sender: FDA-Public Use
  Company Number: JP-MERCK-0605USA03477

PATIENT
  Age: 81 Year
  Sex: Male

DRUGS (5)
  1. SINGULAIR [Suspect]
     Indication: ASTHMA
     Route: 048
     Dates: start: 20060331, end: 20060410
  2. CEFDITOREN PIVOXIL [Suspect]
     Indication: BRONCHITIS
     Route: 065
     Dates: start: 20060407, end: 20060409
  3. PREDONINE [Concomitant]
     Route: 065
  4. TULOBUTEROL [Concomitant]
     Route: 061
  5. QVAR 40 [Concomitant]
     Route: 055

REACTIONS (1)
  - HEPATIC FUNCTION ABNORMAL [None]
